FAERS Safety Report 5392266-9 (Version None)
Quarter: 2007Q3

REPORT INFORMATION
  Report Type: 
  Country: None (occurrence: None)
  Receive Date: 20070720
  Receipt Date: 20070716
  Transmission Date: 20080115
  Serious: Yes (Other)
  Sender: FDA-Public Use
  Company Number: US-JNJFOC-20070703821

PATIENT
  Sex: Female
  Weight: 72.58 kg

DRUGS (4)
  1. LEVAQUIN [Suspect]
     Indication: ARTHROPOD BITE
     Route: 065
     Dates: start: 20070628, end: 20070707
  2. SYNTHROID [Concomitant]
     Indication: THYROID DISORDER
     Route: 048
  3. CYTOMEL [Concomitant]
     Indication: THYROID DISORDER
     Route: 065
  4. GLUCOPHAGE [Concomitant]
     Indication: POLYCYSTIC OVARIES
     Route: 065

REACTIONS (4)
  - ARTHRALGIA [None]
  - CONFUSIONAL STATE [None]
  - DIZZINESS [None]
  - FATIGUE [None]
